FAERS Safety Report 4961695-7 (Version None)
Quarter: 2006Q2

REPORT INFORMATION
  Report Type: 
  Country: None (occurrence: None)
  Receive Date: 20060404
  Receipt Date: 20051011
  Transmission Date: 20061013
  Serious: Yes (Hospitalization, Disabling)
  Sender: FDA-Public Use
  Company Number: DEWYE044711OCT05

PATIENT
  Sex: Male
  Weight: 59 kg

DRUGS (2)
  1. ENBREL [Suspect]
     Indication: JUVENILE ARTHRITIS
     Route: 058
     Dates: start: 20020301, end: 20050901
  2. LANTAREL [Concomitant]
     Dates: start: 20000101

REACTIONS (1)
  - UVEITIS [None]
